FAERS Safety Report 25318171 (Version 2)
Quarter: 2025Q4

REPORT INFORMATION
  Report Type: Spontaneous
  Country: EU (occurrence: EU)
  Receive Date: 20250515
  Receipt Date: 20251216
  Transmission Date: 20260117
  Serious: No
  Sender: NOVARTIS
  Company Number: EU-002147023-NVSC2025SI075905

PATIENT
  Sex: Female

DRUGS (3)
  1. NILOTINIB [Suspect]
     Active Substance: NILOTINIB
     Indication: Chronic myeloid leukaemia
     Dosage: UNK (2 X 400MG)
     Route: 065
     Dates: start: 2014
  2. NILOTINIB [Suspect]
     Active Substance: NILOTINIB
     Dosage: UNK (2 X 300)
     Route: 065
     Dates: start: 201506
  3. NILOTINIB [Suspect]
     Active Substance: NILOTINIB
     Dosage: UNK (2 X 400)
     Route: 065
     Dates: start: 201510

REACTIONS (2)
  - Cytogenetic analysis abnormal [Unknown]
  - Drug resistance [Unknown]

NARRATIVE: CASE EVENT DATE: 20150101
